FAERS Safety Report 8259252-2 (Version None)
Quarter: 2012Q2

REPORT INFORMATION
  Report Type: 
  Country: None (occurrence: None)
  Receive Date: 20120404
  Receipt Date: 20120329
  Transmission Date: 20120825
  Serious: Yes (Other)
  Sender: FDA-Public Use
  Company Number: JP-JNJFOC-20120212656

PATIENT
  Age: 49 Year
  Sex: Male

DRUGS (3)
  1. TRAMADOL HYDROCHLORIDE AND ACETAMINOPHEN [Suspect]
     Dosage: 2 DF X 1 PER 1 DAY
     Route: 048
     Dates: start: 20111220, end: 20120123
  2. LOXONIN [Concomitant]
     Indication: PAIN
     Dosage: 1 SHEET PER DAY
     Route: 062
  3. TRAMADOL HYDROCHLORIDE AND ACETAMINOPHEN [Suspect]
     Indication: PAIN
     Dosage: 2 DF X 1 PER 1 DAY
     Route: 048
     Dates: start: 20120222

REACTIONS (1)
  - VISUAL ACUITY REDUCED [None]
